FAERS Safety Report 17920243 (Version 4)
Quarter: 2020Q3

REPORT INFORMATION
  Report Type: Spontaneous
  Country: US (occurrence: US)
  Receive Date: 20200620
  Receipt Date: 20200707
  Transmission Date: 20201103
  Serious: No
  Sender: FDA-Public Use
  Company Number: US-TEVA-2020-US-1788877

PATIENT
  Sex: Male

DRUGS (3)
  1. HYDRALAZINE HCL TEVA [Suspect]
     Active Substance: HYDRALAZINE HYDROCHLORIDE
     Indication: HYPERTENSION
     Route: 065
  2. HYDRALAZINE HCL TEVA [Suspect]
     Active Substance: HYDRALAZINE HYDROCHLORIDE
     Route: 065
  3. HYDRALAZINE HCL TEVA [Suspect]
     Active Substance: HYDRALAZINE HYDROCHLORIDE
     Route: 065

REACTIONS (9)
  - Pain in extremity [Unknown]
  - Drug ineffective [Unknown]
  - Initial insomnia [Unknown]
  - Abdominal pain upper [Unknown]
  - Constipation [Unknown]
  - Lip swelling [Unknown]
  - Dysuria [Unknown]
  - Blood pressure increased [Recovering/Resolving]
  - Pruritus [Unknown]
